FAERS Safety Report 13130383 (Version 2)
Quarter: 2017Q1

REPORT INFORMATION
  Report Type: Spontaneous
  Country: US (occurrence: US)
  Receive Date: 20170119
  Receipt Date: 20170324
  Transmission Date: 20170428
  Serious: Yes (Life-Threatening)
  Sender: FDA-Public Use
  Company Number: US-JNJFOC-20170116805

PATIENT

DRUGS (3)
  1. CISPLATIN. [Suspect]
     Active Substance: CISPLATIN
     Indication: NEUROENDOCRINE TUMOUR
     Route: 065
  2. LIPIDOL (ALIBENDOL) [Suspect]
     Active Substance: ALIBENDOL
     Indication: NEUROENDOCRINE TUMOUR
     Route: 065
  3. DOXIL [Suspect]
     Active Substance: DOXORUBICIN HYDROCHLORIDE
     Indication: NEUROENDOCRINE TUMOUR
     Route: 065

REACTIONS (3)
  - Off label use [Unknown]
  - Product use issue [Unknown]
  - Respiratory failure [Unknown]

NARRATIVE: CASE EVENT DATE: 20170117
